FAERS Safety Report 23289372 (Version 1)
Quarter: 2023Q4

REPORT INFORMATION
  Report Type: Spontaneous
  Country: US (occurrence: US)
  Receive Date: 20231212
  Receipt Date: 20231212
  Transmission Date: 20240110
  Serious: Yes (Other)
  Sender: FDA-Public Use
  Company Number: US-002147023-NVSC2023US257793

PATIENT
  Sex: Female

DRUGS (2)
  1. ENTRESTO [Suspect]
     Active Substance: SACUBITRIL\VALSARTAN
     Indication: Product used for unknown indication
     Dosage: 24/26 MG, BID
     Route: 048
  2. UNSPECIFIED INGREDIENT [Concomitant]
     Active Substance: UNSPECIFIED INGREDIENT
     Indication: Product used for unknown indication
     Dosage: 50 MG
     Route: 065

REACTIONS (13)
  - Atrial fibrillation [Unknown]
  - Ulcer [Recovering/Resolving]
  - Diarrhoea [Recovering/Resolving]
  - Dizziness [Recovering/Resolving]
  - Gastric pH decreased [Recovering/Resolving]
  - Faeces discoloured [Recovering/Resolving]
  - Nausea [Recovering/Resolving]
  - Sleep disorder [Recovering/Resolving]
  - Abdominal pain upper [Not Recovered/Not Resolved]
  - Anorectal discomfort [Not Recovered/Not Resolved]
  - Dysuria [Unknown]
  - Heart rate irregular [Unknown]
  - Feeding disorder [Unknown]
